FAERS Safety Report 13003848 (Version 2)
Quarter: 2016Q4

REPORT INFORMATION
  Report Type: Spontaneous
  Country: US (occurrence: US)
  Receive Date: 20161206
  Receipt Date: 20161227
  Transmission Date: 20170207
  Serious: No
  Sender: FDA-Public Use
  Company Number: US-ELI_LILLY_AND_COMPANY-US201612000923

PATIENT
  Age: 53 Year
  Sex: Male

DRUGS (3)
  1. HUMALOG [Suspect]
     Active Substance: INSULIN LISPRO
     Dosage: UNK, UNKNOWN
     Route: 065
     Dates: start: 201611
  2. LANTUS [Concomitant]
     Active Substance: INSULIN GLARGINE
     Indication: PRODUCT USED FOR UNKNOWN INDICATION
     Dosage: UNK, UNKNOWN
     Route: 065
  3. HUMALOG [Suspect]
     Active Substance: INSULIN LISPRO
     Indication: TYPE 2 DIABETES MELLITUS
     Dosage: UNK, UNKNOWN
     Route: 065
     Dates: start: 201610

REACTIONS (12)
  - Irritability [Unknown]
  - Injection site pain [Unknown]
  - Mental disorder [Unknown]
  - Stress [Unknown]
  - Diabetes mellitus inadequate control [Not Recovered/Not Resolved]
  - Psychological factor affecting medical condition [Not Recovered/Not Resolved]
  - Frustration tolerance decreased [Unknown]
  - Injection site haemorrhage [Not Recovered/Not Resolved]
  - Injection site bruising [Not Recovered/Not Resolved]
  - Erythema [Unknown]
  - Incorrect dose administered [Unknown]
  - Thought blocking [Unknown]

NARRATIVE: CASE EVENT DATE: 201611
